FAERS Safety Report 13672286 (Version 2)
Quarter: 2017Q3

REPORT INFORMATION
  Report Type: Spontaneous
  Country: HU (occurrence: HU)
  Receive Date: 20170620
  Receipt Date: 20170704
  Transmission Date: 20171127
  Serious: Yes (Hospitalization)
  Sender: FDA-Public Use
  Company Number: PHHY2017HU090153

PATIENT

DRUGS (1)
  1. IMATINIB [Suspect]
     Active Substance: IMATINIB
     Indication: CHRONIC MYELOID LEUKAEMIA
     Dosage: UNK
     Route: 065
     Dates: start: 2014

REACTIONS (3)
  - Anaemia [Recovering/Resolving]
  - Gastritis erosive [Unknown]
  - Gastric antral vascular ectasia [Recovered/Resolved]

NARRATIVE: CASE EVENT DATE: 201701
